FAERS Safety Report 15248146 (Version 2)
Quarter: 2018Q3

REPORT INFORMATION
  Report Type: Report from Study
  Country: None (occurrence: HU)
  Receive Date: 20180807
  Receipt Date: 20180831
  Transmission Date: 20181010
  Serious: Yes (Death, Other)
  Sender: FDA-Public Use
  Company Number: HU-ABBVIE-18K-076-2255541-00

PATIENT
  Age: 76 Year
  Sex: Male

DRUGS (10)
  1. EXELON [Concomitant]
     Active Substance: RIVASTIGMINE TARTRATE
     Indication: COGNITIVE DISORDER
     Dosage: 9,5 MG/24 H
     Route: 062
     Dates: start: 201606
  2. FRAXIPARINE [Concomitant]
     Active Substance: NADROPARIN CALCIUM
     Indication: ATRIAL FIBRILLATION
     Route: 058
     Dates: start: 201604
  3. STALEVO [Concomitant]
     Active Substance: CARBIDOPA\ENTACAPONE\LEVODOPA
     Indication: PARKINSON^S DISEASE
     Dosage: 150MG/37.5MG/200MG, 1?2 TIMES 1 TABLET AT NIGHT
     Route: 048
     Dates: start: 2005
  4. KVENTIAX [Concomitant]
     Active Substance: QUETIAPINE FUMARATE
     Indication: HALLUCINATION
     Route: 048
     Dates: start: 2014
  5. HALOPERIDOL?RICHTER [Concomitant]
     Indication: HALLUCINATION
     Dosage: 1X20 DROPS AS REQUIRED
     Route: 048
     Dates: start: 201708
  6. HALOPERIDOL?RICHTER [Concomitant]
     Indication: GENERAL PHYSICAL HEALTH DETERIORATION
  7. DUODOPA [Suspect]
     Active Substance: CARBIDOPA\LEVODOPA
     Indication: PRODUCT USED FOR UNKNOWN INDICATION
     Dosage: MORNING DOSE 7.0ML; CONTINUOUS DOSE 5.1ML/H;EXTRA DOSE 2.0ML
     Route: 050
     Dates: start: 20150612
  8. GERADORM [Concomitant]
     Indication: SLEEP DISORDER
     Dosage: 1 TABLET IN THE EVENING
     Route: 048
     Dates: start: 20170615
  9. TIAPRIDAL [Concomitant]
     Active Substance: TIAPRIDE HYDROCHLORIDE
     Indication: SLEEP DISORDER
     Route: 048
     Dates: start: 20170630
  10. HUMA?PRONOL [Concomitant]
     Indication: ATRIAL FIBRILLATION
     Route: 048
     Dates: start: 20160405

REACTIONS (6)
  - Death [Fatal]
  - Dysphagia [Not Recovered/Not Resolved]
  - Cardiac arrest [Fatal]
  - Atrial fibrillation [Fatal]
  - Parkinson^s disease [Fatal]
  - Dementia Alzheimer^s type [Fatal]

NARRATIVE: CASE EVENT DATE: 20180202
